FAERS Safety Report 20907261 (Version 13)
Quarter: 2025Q3

REPORT INFORMATION
  Report Type: Report from Study
  Country: US (occurrence: US)
  Receive Date: 20220602
  Receipt Date: 20250722
  Transmission Date: 20251020
  Serious: Yes (Death, Other)
  Sender: TAKEDA
  Company Number: US-TAKEDA-2022TUS015444

PATIENT
  Age: 58 Year
  Sex: Male

DRUGS (5)
  1. ADVATE [Suspect]
     Active Substance: ANTIHEMOPHILIC FACTOR, HUMAN RECOMBINANT
     Indication: Prophylaxis
     Dosage: 3000 INTERNATIONAL UNIT, 3/WEEK
  2. ADVATE [Suspect]
     Active Substance: ANTIHEMOPHILIC FACTOR, HUMAN RECOMBINANT
  3. ADVATE [Suspect]
     Active Substance: ANTIHEMOPHILIC FACTOR, HUMAN RECOMBINANT
  4. ADVATE [Suspect]
     Active Substance: ANTIHEMOPHILIC FACTOR, HUMAN RECOMBINANT
  5. ADVATE [Suspect]
     Active Substance: ANTIHEMOPHILIC FACTOR, HUMAN RECOMBINANT

REACTIONS (14)
  - Death [Fatal]
  - Haemarthrosis [Not Recovered/Not Resolved]
  - Tonsil cancer [Unknown]
  - Blood urine present [Unknown]
  - Muscle haemorrhage [Recovered/Resolved]
  - Contusion [Unknown]
  - Skin haemorrhage [Unknown]
  - Haemorrhagic diathesis [Unknown]
  - Haemorrhoids [Unknown]
  - Muscle strain [Unknown]
  - Weight decreased [Unknown]
  - Extra dose administered [Unknown]
  - Oral pain [Unknown]
  - Pain in jaw [Unknown]

NARRATIVE: CASE EVENT DATE: 20220303
